FAERS Safety Report 9053804 (Version 1)
Quarter: 2013Q1

REPORT INFORMATION
  Report Type: Spontaneous
  Country: US (occurrence: US)
  Receive Date: 20130207
  Receipt Date: 20130207
  Transmission Date: 20140127
  Serious: Yes (Death, Hospitalization)
  Sender: FDA-Public Use
  Company Number: US-GLAXOSMITHKLINE-A1010387A

PATIENT
  Age: 73 Year
  Sex: Female

DRUGS (12)
  1. ADVAIR [Suspect]
     Indication: CHRONIC OBSTRUCTIVE PULMONARY DISEASE
     Route: 055
  2. VENTOLIN [Suspect]
     Indication: CHRONIC OBSTRUCTIVE PULMONARY DISEASE
     Route: 065
  3. PREDNISONE [Concomitant]
  4. LASIX [Concomitant]
  5. NITROSTAT [Concomitant]
  6. PRAVASTATIN [Concomitant]
  7. BENICAR [Concomitant]
  8. FLEXERIL [Concomitant]
  9. KLOR-CON [Concomitant]
  10. HYDROXYUREA [Concomitant]
  11. GABAPENTIN [Concomitant]
  12. NITROGLYCERINE [Concomitant]

REACTIONS (3)
  - Pneumonia [Unknown]
  - Chronic obstructive pulmonary disease [Fatal]
  - Emphysema [Fatal]
